FAERS Safety Report 7001789-8 (Version None)
Quarter: 2010Q3

REPORT INFORMATION
  Report Type: 
  Country: None (occurrence: None)
  Receive Date: 20100920
  Receipt Date: 20070815
  Transmission Date: 20110219
  Serious: Yes (Other)
  Sender: FDA-Public Use
  Company Number: US-ASTRAZENECA-2007UW02147

PATIENT
  Age: 14522 Day
  Sex: Female
  Weight: 66.2 kg

DRUGS (18)
  1. SEROQUEL [Suspect]
     Indication: BIPOLAR DISORDER
     Route: 048
     Dates: start: 20000101
  2. SEROQUEL [Suspect]
     Dosage: 200MG TO 800MG (FLUCTUATING)
     Route: 048
     Dates: start: 20020522
  3. ABILIFY [Concomitant]
     Dates: start: 20040101
  4. ABILIFY [Concomitant]
     Route: 048
     Dates: start: 20060310
  5. GEODON [Concomitant]
     Dates: start: 20060101
  6. GEODON [Concomitant]
     Route: 048
     Dates: start: 20010515
  7. RISPERDAL [Concomitant]
     Dates: start: 20000424
  8. RISPERDAL [Concomitant]
     Dates: start: 20010227
  9. ZYPREXA [Concomitant]
     Dosage: 7.5 MG TO 15 MG
     Route: 048
     Dates: start: 20000518
  10. TOPAMAX [Concomitant]
     Indication: AFFECTIVE DISORDER
     Dosage: 200MG TAB, HALF TAB TWO TIMES A DAY
     Route: 048
     Dates: start: 20060901
  11. DEPAKOTE [Concomitant]
     Dates: start: 20000424
  12. PROTONIX [Concomitant]
     Route: 048
     Dates: start: 20020130
  13. SINGULAIR [Concomitant]
     Indication: ASTHMA
     Route: 048
     Dates: start: 20050317
  14. CYMBALTA [Concomitant]
     Route: 048
     Dates: start: 20060206
  15. AMBIEN [Concomitant]
     Indication: SLEEP DISORDER
     Route: 048
     Dates: start: 20010515
  16. HYDROXYZINE HCL [Concomitant]
     Indication: ANXIETY
     Dosage: 25MG, ONE TO TWO CAPSULES
     Route: 048
     Dates: start: 20020707
  17. LEXAPRO [Concomitant]
     Route: 048
     Dates: start: 20031005
  18. MOTRIN [Concomitant]
     Indication: BACK PAIN
     Dosage: 800MG EVERY FOUR HOURS PRN
     Route: 048
     Dates: start: 20010515

REACTIONS (5)
  - DIABETES MELLITUS [None]
  - LIMB INJURY [None]
  - OROPHARYNGEAL PAIN [None]
  - TOOTH ABSCESS [None]
  - TYPE 2 DIABETES MELLITUS [None]
